FAERS Safety Report 19197016 (Version 1)
Quarter: 2021Q2

REPORT INFORMATION
  Report Type: Report from Study
  Country: US (occurrence: US)
  Receive Date: 20210429
  Receipt Date: 20210429
  Transmission Date: 20210717
  Serious: Yes (Hospitalization)
  Sender: FDA-Public Use
  Company Number: US-EISAI MEDICAL RESEARCH-EC-2021-091677

PATIENT
  Age: 83 Year
  Sex: Male

DRUGS (3)
  1. EVEROLIMUS. [Concomitant]
     Active Substance: EVEROLIMUS
  2. LENVIMA [Suspect]
     Active Substance: LENVATINIB
     Route: 048
     Dates: start: 2021, end: 202104
  3. LENVIMA [Suspect]
     Active Substance: LENVATINIB
     Indication: RENAL CELL CARCINOMA
     Route: 048
     Dates: start: 2021, end: 2021

REACTIONS (8)
  - Dehydration [Recovered/Resolved]
  - Delusion [Recovered/Resolved]
  - Blood potassium increased [Recovered/Resolved]
  - Product use complaint [Unknown]
  - Joint swelling [Not Recovered/Not Resolved]
  - Diarrhoea [Recovered/Resolved]
  - Asthenia [Unknown]
  - Loose tooth [Recovered/Resolved]

NARRATIVE: CASE EVENT DATE: 2021
